FAERS Safety Report 9219005 (Version 1)
Quarter: 2013Q2

REPORT INFORMATION
  Report Type: Spontaneous
  Country: US (occurrence: US)
  Receive Date: 20130409
  Receipt Date: 20130409
  Transmission Date: 20140414
  Serious: No
  Sender: FDA-Public Use
  Company Number: US-JNJFOC-20130309629

PATIENT
  Age: 29 Year
  Sex: Male
  Weight: 104.33 kg

DRUGS (1)
  1. INVEGA [Suspect]
     Indication: SCHIZOPHRENIA
     Route: 048
     Dates: start: 2012

REACTIONS (1)
  - Drug dose omission [Not Recovered/Not Resolved]
